FAERS Safety Report 20041329 (Version 4)
Quarter: 2022Q3

REPORT INFORMATION
  Report Type: Report from Study
  Country: US (occurrence: US)
  Receive Date: 20211107
  Receipt Date: 20220827
  Transmission Date: 20221027
  Serious: Yes (Other)
  Sender: FDA-Public Use
  Company Number: US-NOVARTISPH-NVSC2021US254220

PATIENT
  Age: 66 Year
  Sex: Female

DRUGS (1)
  1. KESIMPTA [Suspect]
     Active Substance: OFATUMUMAB
     Indication: Product used for unknown indication
     Dosage: UNK
     Route: 065
     Dates: start: 20211105

REACTIONS (9)
  - Loss of consciousness [Unknown]
  - Cataract [Unknown]
  - Muscle tightness [Recovered/Resolved]
  - Balance disorder [Not Recovered/Not Resolved]
  - Visual impairment [Recovered/Resolved]
  - Incontinence [Unknown]
  - Vaginal discharge [Unknown]
  - Pyrexia [Unknown]
  - Band sensation [Recovered/Resolved]

NARRATIVE: CASE EVENT DATE: 20211105
